FAERS Safety Report 24360682 (Version 3)
Quarter: 2024Q4

REPORT INFORMATION
  Report Type: Report from Study
  Country: TW (occurrence: TW)
  Receive Date: 20240925
  Receipt Date: 20241016
  Transmission Date: 20250115
  Serious: Yes (Hospitalization)
  Sender: ABBVIE
  Company Number: TW-ABBVIE-5935413

PATIENT
  Age: 46 Year
  Sex: Female
  Weight: 82 kg

DRUGS (5)
  1. RINVOQ [Suspect]
     Active Substance: UPADACITINIB
     Indication: Rheumatoid arthritis
     Route: 048
     Dates: start: 20231206, end: 20240923
  2. SILYGEN [Concomitant]
     Indication: Chronic hepatitis
     Dosage: TIME INTERVAL: 0.33333333 DAYS: 100MQ
     Route: 048
     Dates: start: 20240322
  3. SULFASALAZINE [Concomitant]
     Active Substance: SULFASALAZINE
     Indication: Rheumatoid arthritis
     Route: 048
     Dates: start: 20240927
  4. PLAQUENIL [Concomitant]
     Active Substance: HYDROXYCHLOROQUINE SULFATE
     Indication: Rheumatoid arthritis
     Dosage: 200MG
     Route: 048
     Dates: start: 20230421
  5. METHOTREXATE [Concomitant]
     Active Substance: METHOTREXATE
     Indication: Rheumatoid arthritis
     Route: 048
     Dates: start: 20230505, end: 20240920

REACTIONS (4)
  - Chronic hepatitis [Unknown]
  - Liver function test abnormal [Recovered/Resolved]
  - Discomfort [Unknown]
  - Arthralgia [Unknown]

NARRATIVE: CASE EVENT DATE: 20240920
